FAERS Safety Report 9495330 (Version 3)
Quarter: 2013Q3

REPORT INFORMATION
  Report Type: Spontaneous
  Country: US (occurrence: US)
  Receive Date: 20130903
  Receipt Date: 20130924
  Transmission Date: 20140515
  Serious: Yes (Other)
  Sender: FDA-Public Use
  Company Number: US-GLAXOSMITHKLINE-A1039157A

PATIENT
  Age: 43 Year
  Sex: Female

DRUGS (2)
  1. LAMICTAL XR [Suspect]
     Indication: EPILEPSY
     Route: 048
  2. ADVIL [Concomitant]

REACTIONS (8)
  - Abortion induced [Unknown]
  - Convulsion [Unknown]
  - Amnesia [Not Recovered/Not Resolved]
  - Incorrect dose administered [Unknown]
  - Weight increased [Unknown]
  - Urinary incontinence [Unknown]
  - Tremor [Recovered/Resolved]
  - Exposure during pregnancy [Unknown]
